FAERS Safety Report 5624042-3 (Version None)
Quarter: 2008Q1

REPORT INFORMATION
  Report Type: 
  Country: None (occurrence: None)
  Receive Date: 20080213
  Receipt Date: 20070912
  Transmission Date: 20080703
  Serious: No
  Sender: FDA-Public Use
  Company Number: US-KINGPHARMUSA00001-K200701180

PATIENT

DRUGS (1)
  1. EPIPEN [Suspect]
     Indication: ARTHROPOD STING
     Dosage: UNK, SINGLE

REACTIONS (9)
  - ANXIETY [None]
  - DYSPNOEA [None]
  - GAIT DISTURBANCE [None]
  - INJECTION SITE BRUISING [None]
  - INJECTION SITE PAIN [None]
  - LIMB DISCOMFORT [None]
  - OEDEMA PERIPHERAL [None]
  - SKIN LACERATION [None]
  - VITAL FUNCTIONS ABNORMAL [None]
